FAERS Safety Report 9732483 (Version 1)
Quarter: 2013Q4

REPORT INFORMATION
  Report Type: Spontaneous
  Country: US (occurrence: US)
  Receive Date: 20131204
  Receipt Date: 20131204
  Transmission Date: 20140711
  Serious: Yes (Hospitalization)
  Sender: FDA-Public Use
  Company Number: PHHY2013US137013

PATIENT
  Age: 42 Year
  Sex: Female

DRUGS (2)
  1. AZITHROMYCIN [Suspect]
     Indication: RESPIRATORY TRACT INFECTION
     Dosage: 500 MG DAILY
     Route: 048
  2. LEVOTHYROXINE [Concomitant]
     Indication: HYPOTHYROIDISM
     Dosage: 15 UG, DAILY
     Route: 048

REACTIONS (7)
  - Biliary dilatation [Recovered/Resolved]
  - Cholelithiasis [Recovered/Resolved]
  - Hepatocellular injury [Recovered/Resolved]
  - Nausea [Recovered/Resolved]
  - Abdominal discomfort [Recovered/Resolved]
  - Abdominal tenderness [Recovered/Resolved]
  - Fatigue [Recovered/Resolved]
